FAERS Safety Report 10543370 (Version 1)
Quarter: 2014Q4

REPORT INFORMATION
  Report Type: Spontaneous
  Country: TR (occurrence: TR)
  Receive Date: 20141027
  Receipt Date: 20141027
  Transmission Date: 20150529
  Serious: Yes (Other)
  Sender: FDA-Public Use
  Company Number: TR-GLAXOSMITHKLINE-TR2014GSK006392

PATIENT
  Age: 49 Year
  Sex: Female

DRUGS (1)
  1. ZYBAN [Suspect]
     Active Substance: BUPROPION HYDROCHLORIDE
     Indication: SMOKING CESSATION THERAPY
     Dosage: UNK
     Route: 048

REACTIONS (7)
  - Weight increased [Unknown]
  - Hypertension [Recovered/Resolved]
  - Fracture [Unknown]
  - Hypercholesterolaemia [Recovered/Resolved]
  - Hepatic steatosis [Unknown]
  - Premature menopause [Not Recovered/Not Resolved]
  - Cholelithiasis [Unknown]
